FAERS Safety Report 6824134-7 (Version None)
Quarter: 2010Q3

REPORT INFORMATION
  Report Type: 
  Country: None (occurrence: None)
  Receive Date: 20100708
  Receipt Date: 20061005
  Transmission Date: 20110219
  Serious: No
  Sender: FDA-Public Use
  Company Number: US-PFIZER INC-2006122098

PATIENT
  Sex: Female
  Weight: 130 kg

DRUGS (2)
  1. CHANTIX [Suspect]
     Indication: SMOKING CESSATION THERAPY
     Dates: start: 20060928
  2. ADDERALL 10 [Concomitant]

REACTIONS (2)
  - NAUSEA [None]
  - VOMITING [None]
